FAERS Safety Report 4834782-1 (Version None)
Quarter: 2005Q4

REPORT INFORMATION
  Report Type: 
  Country: None (occurrence: None)
  Receive Date: 20051114
  Receipt Date: 20051031
  Transmission Date: 20060501
  Serious: Yes (Other)
  Sender: FDA-Public Use
  Company Number: 2005149753

PATIENT
  Sex: Male
  Weight: 72.5755 kg

DRUGS (2)
  1. CELEBREX [Suspect]
     Indication: PROCEDURAL PAIN
     Dosage: (200 MG,), ORAL
     Route: 048
     Dates: start: 20051001
  2. PREVACID [Concomitant]

REACTIONS (2)
  - ANAPHYLACTIC REACTION [None]
  - PAIN [None]
